FAERS Safety Report 13293892 (Version 1)
Quarter: 2017Q1

REPORT INFORMATION
  Report Type: Spontaneous
  Country: FR (occurrence: FR)
  Receive Date: 20170303
  Receipt Date: 20170303
  Transmission Date: 20170428
  Serious: Yes (Death)
  Sender: FDA-Public Use
  Company Number: FR-NOVOPROD-533571

PATIENT
  Age: 71 Year
  Sex: Female

DRUGS (3)
  1. ACTILYSE [Suspect]
     Active Substance: ALTEPLASE
     Indication: THROMBOLYSIS
     Dosage: 58 MG, SINGLE
     Route: 042
     Dates: start: 20151105, end: 20151105
  2. LOXEN                              /00639802/ [Suspect]
     Active Substance: NICARDIPINE
     Indication: THROMBOLYSIS
     Dosage: UNK
     Route: 042
     Dates: start: 20151105, end: 20151105
  3. ACTRAPID [Suspect]
     Active Substance: INSULIN HUMAN
     Indication: PRODUCT USED FOR UNKNOWN INDICATION
     Dosage: UNK
     Route: 042
     Dates: start: 20151105, end: 20151105

REACTIONS (1)
  - Haemorrhagic transformation stroke [Fatal]

NARRATIVE: CASE EVENT DATE: 20151105
